FAERS Safety Report 5107885-4 (Version None)
Quarter: 2006Q3

REPORT INFORMATION
  Report Type: 
  Country: None (occurrence: None)
  Receive Date: 20060915
  Receipt Date: 20060906
  Transmission Date: 20061208
  Serious: Yes (Death)
  Sender: FDA-Public Use
  Company Number: 2006108526

PATIENT
  Sex: Male
  Weight: 1.3608 kg

DRUGS (15)
  1. ZOLOFT [Suspect]
     Indication: PELVIC PAIN
     Dosage: 50 MG (1 IN 1 D),
  2. FENTANYL [Suspect]
     Indication: DRUG USE FOR UNKNOWN INDICATION
     Dosage: 75 MG (1 IN 1 D),
     Dates: start: 20060501, end: 20060515
  3. NEURONTIN [Suspect]
     Indication: EPILEPSY
     Dosage: 900 MG (1 IN 1 D),
     Dates: start: 20060401, end: 20060515
  4. NEURONTIN [Suspect]
     Indication: PAIN
     Dosage: 900 MG (1 IN 1 D),
     Dates: start: 20060401, end: 20060515
  5. DETROL LA [Suspect]
     Indication: BLADDER DISORDER
  6. DETROL LA [Suspect]
     Indication: PAIN
  7. LAMICTAL [Suspect]
     Indication: EPILEPSY
     Dosage: 400 MG (1 IN 1 D)
  8. LAMICTAL [Suspect]
     Indication: PAIN
     Dosage: 400 MG (1 IN 1 D)
  9. KLONOPIN [Suspect]
     Indication: EPILEPSY
     Dosage: 2 MG (1 IN 1 D)
  10. KLONOPIN [Suspect]
     Indication: PAIN
     Dosage: 2 MG (1 IN 1 D)
  11. PERCOCET [Concomitant]
  12. PROGESTERONE [Concomitant]
  13. VANCERIL (BECLOMETASONE DIPROPIONATE) [Concomitant]
  14. NASACORT [Concomitant]
  15. PRENATAL VITAMINS (ASCORBIC ACID, BIOTIN, MINERALS NOS, NICOTINIC ACID [Concomitant]

REACTIONS (3)
  - DEATH NEONATAL [None]
  - DRUG EXPOSURE DURING PREGNANCY [None]
  - PREMATURE BABY [None]
